FAERS Safety Report 14299592 (Version 1)
Quarter: 2017Q4

REPORT INFORMATION
  Report Type: Report from Study
  Country: None (occurrence: ZA)
  Receive Date: 20171219
  Receipt Date: 20171219
  Transmission Date: 20180321
  Serious: Yes (Hospitalization)
  Sender: FDA-Public Use
  Company Number: ZA-ABBVIE-17K-143-2197008-00

PATIENT
  Age: 39 Year
  Sex: Male

DRUGS (2)
  1. HUMIRA [Suspect]
     Active Substance: ADALIMUMAB
     Indication: COLITIS ULCERATIVE
     Dosage: WK0=160MG; WK2=80MG; WK4 ONWARDS=40MG EOW
     Route: 058
     Dates: start: 20171130, end: 20171130
  2. HUMIRA [Suspect]
     Active Substance: ADALIMUMAB
     Dosage: WK0=160MG; WK2=80MG; WK4 ONWARDS=40MG EOW
     Route: 058
     Dates: start: 201712, end: 201712

REACTIONS (1)
  - Transfusion [Unknown]

NARRATIVE: CASE EVENT DATE: 201712
